FAERS Safety Report 24092731 (Version 1)
Quarter: 2024Q3

REPORT INFORMATION
  Report Type: Spontaneous
  Country: US (occurrence: US)
  Receive Date: 20240715
  Receipt Date: 20240715
  Transmission Date: 20241016
  Serious: Yes (Hospitalization)
  Sender: LGM PHARMA
  Company Number: US-LGM Pharma Solutions, LLC-2159123

PATIENT
  Age: 57 Year
  Sex: Male

DRUGS (1)
  1. CHENODIOL [Suspect]
     Active Substance: CHENODIOL
     Indication: Lipid metabolism disorder
     Route: 048
     Dates: start: 20100401

REACTIONS (4)
  - Oropharyngeal pain [Unknown]
  - Infection [Unknown]
  - Speech disorder [Unknown]
  - Dyspnoea [Unknown]
